FAERS Safety Report 6776123-9 (Version None)
Quarter: 2010Q2

REPORT INFORMATION
  Report Type: 
  Country: None (occurrence: None)
  Receive Date: 20100615
  Receipt Date: 20100602
  Transmission Date: 20101027
  Serious: Yes (Hospitalization, Other)
  Sender: FDA-Public Use
  Company Number: 20108887

PATIENT
  Age: 3 Year
  Sex: Male

DRUGS (1)
  1. LIORESAL [Suspect]
     Indication: MUSCLE SPASTICITY
     Dosage: MCG, DAILY, INTRATHECAL SEE B5
     Route: 039

REACTIONS (3)
  - HYPERTONIA [None]
  - IRRITABILITY [None]
  - MENINGITIS [None]
